FAERS Safety Report 9579963 (Version 2)
Quarter: 2013Q4

REPORT INFORMATION
  Report Type: Spontaneous
  Country: US (occurrence: US)
  Receive Date: 20131002
  Receipt Date: 20131018
  Transmission Date: 20140711
  Serious: No
  Sender: FDA-Public Use
  Company Number: US-009507513-1309USA013571

PATIENT
  Age: 61 Year
  Sex: Male
  Weight: 116 kg

DRUGS (10)
  1. LISINOPRIL [Suspect]
     Dosage: UNK
  2. VALSARTAN [Concomitant]
     Dosage: 160 MG, QD
  3. ASPIRIN [Concomitant]
     Dosage: 325 MG, QD
  4. METFORMIN [Concomitant]
     Dosage: 1000 MG, BID
  5. ATENOLOL [Concomitant]
     Dosage: 75 MG, QD
  6. SIMVASTATIN TABLETS, USP [Concomitant]
     Dosage: 20 MG, QD
  7. RANITIDINE [Concomitant]
     Dosage: 150 MG, BID
  8. NOVOLIN [Concomitant]
     Dosage: 70/30 INSULIN 75 UNITS EVERY MORNING AND 85 UNITS EVERY EVENING
     Route: 058
  9. TEMAZEPAM [Concomitant]
     Dosage: 15 TO 30 MG DAILY AS NEEDED AT BEDTIME
  10. VITAMINS (UNSPECIFIED) [Concomitant]
     Dosage: DAILY

REACTIONS (1)
  - Cough [Unknown]
